FAERS Safety Report 7494636-1 (Version None)
Quarter: 2011Q2

REPORT INFORMATION
  Report Type: 
  Country: None (occurrence: None)
  Receive Date: 20110520
  Receipt Date: 20110516
  Transmission Date: 20111010
  Serious: Yes (Death, Hospitalization)
  Sender: FDA-Public Use
  Company Number: US-ROCHE-578758

PATIENT
  Sex: Male
  Weight: 77.8 kg

DRUGS (12)
  1. TOCILIZUMAB [Suspect]
     Indication: RHEUMATOID ARTHRITIS
     Dosage: DOSE REPORTED AS 640 MG, 30 ML. PERMANENTELY DISCONTINUED ON 29 JULY 2008.
     Route: 042
     Dates: start: 20080415, end: 20080415
  2. TOCILIZUMAB [Suspect]
     Route: 042
     Dates: start: 20080708
  3. MELPHALAN HYDROCHLORIDE [Concomitant]
     Route: 048
     Dates: start: 20070226, end: 20080727
  4. METHOTREXATE [Suspect]
     Indication: RHEUMATOID ARTHRITIS
     Route: 048
     Dates: start: 20060304, end: 20080727
  5. TOCILIZUMAB [Suspect]
     Route: 042
     Dates: start: 20080610, end: 20080610
  6. ADVIL LIQUI-GELS [Concomitant]
     Dosage: FREQUENCY: PRN
     Dates: start: 20030601, end: 20080727
  7. FOLIC ACID [Concomitant]
     Dates: start: 20050706, end: 20080727
  8. MULTIVITAMIN NOS [Concomitant]
     Dosage: DRUG:MULTIVITAMIN
     Dates: start: 20030801, end: 20080727
  9. TOCILIZUMAB [Suspect]
     Route: 042
     Dates: start: 20080513, end: 20080513
  10. CALCIUM CARBONATE [Concomitant]
     Dates: start: 20030801, end: 20080727
  11. PRILOSEC [Concomitant]
     Dates: start: 20071001, end: 20080727
  12. INSULIN [Concomitant]
     Dates: start: 20080729, end: 20080804

REACTIONS (3)
  - INTERSTITIAL LUNG DISEASE [None]
  - HAEMORRHAGIC STROKE [None]
  - MYOCARDIAL INFARCTION [None]
